FAERS Safety Report 10179355 (Version 2)
Quarter: 2014Q2

REPORT INFORMATION
  Report Type: Report from Study
  Country: CA (occurrence: CA)
  Receive Date: 20140519
  Receipt Date: 20140519
  Transmission Date: 20141212
  Serious: Yes (Hospitalization, Other)
  Sender: FDA-Public Use
  Company Number: CA-TEVA-458970USA

PATIENT
  Sex: Male

DRUGS (13)
  1. COPAXONE [Suspect]
     Indication: MULTIPLE SCLEROSIS
     Dates: start: 20000713
  2. AMITRIPTYLINE [Suspect]
  3. GABAPENTIN [Concomitant]
  4. CIPRALEX [Concomitant]
  5. AMLODIPINE [Concomitant]
  6. SENOKOT [Concomitant]
  7. MELATONIN [Concomitant]
  8. VITAMIN D [Concomitant]
  9. ALTACE [Concomitant]
  10. ASPIRIN [Concomitant]
  11. BACLOFEN [Concomitant]
  12. ATORVASTATIN [Concomitant]
  13. LORAZEPAM [Concomitant]

REACTIONS (2)
  - Cystitis [Unknown]
  - Renal disorder [Unknown]
